FAERS Safety Report 6745731-3 (Version None)
Quarter: 2010Q2

REPORT INFORMATION
  Report Type: 
  Country: None (occurrence: None)
  Receive Date: 20100528
  Receipt Date: 20100517
  Transmission Date: 20101027
  Serious: Yes (Other)
  Sender: FDA-Public Use
  Company Number: PHHY2010FR18859

PATIENT
  Age: 73 Year
  Sex: Female
  Weight: 96 kg

DRUGS (4)
  1. ACLASTA [Suspect]
     Indication: OSTEOPOROSIS
     Dosage: UNK
     Dates: start: 20100308
  2. SPIRONOLACTONE [Concomitant]
     Dosage: 25 MG DAILY
  3. KARDEGIC [Concomitant]
     Dosage: 75 MG DAILY
  4. DIOSMIN [Concomitant]
     Dosage: 600 MG

REACTIONS (5)
  - ERYTHEMA [None]
  - ERYTHEMA NODOSUM [None]
  - INFLUENZA LIKE ILLNESS [None]
  - OEDEMA PERIPHERAL [None]
  - PYREXIA [None]
